FAERS Safety Report 13885978 (Version 2)
Quarter: 2017Q3

REPORT INFORMATION
  Report Type: Report from Study
  Country: US (occurrence: US)
  Receive Date: 20170821
  Receipt Date: 20170901
  Transmission Date: 20171127
  Serious: Yes (Other)
  Sender: FDA-Public Use
  Company Number: US-JAZZ-2017-US-010390

PATIENT
  Sex: Female

DRUGS (22)
  1. ADDERALL [Concomitant]
     Active Substance: AMPHETAMINE ASPARTATE\AMPHETAMINE SULFATE\DEXTROAMPHETAMINE SACCHARATE\DEXTROAMPHETAMINE SULFATE
  2. RITALIN [Concomitant]
     Active Substance: METHYLPHENIDATE HYDROCHLORIDE
  3. OXYCODONE HYDROCHLORIDE. [Concomitant]
     Active Substance: OXYCODONE HYDROCHLORIDE
  4. PROZAC [Concomitant]
     Active Substance: FLUOXETINE HYDROCHLORIDE
  5. HYDROXYZINE HCL [Concomitant]
     Active Substance: HYDROXYZINE HYDROCHLORIDE
  6. GABAPENTIN. [Concomitant]
     Active Substance: GABAPENTIN
  7. XYREM [Suspect]
     Active Substance: SODIUM OXYBATE
     Indication: NARCOLEPSY
     Dosage: 2 G, BID
     Route: 048
     Dates: start: 201304, end: 201309
  8. MYRBETRIQ [Concomitant]
     Active Substance: MIRABEGRON
  9. PERCOCET                           /00446701/ [Concomitant]
     Active Substance: ACETAMINOPHEN\OXYCODONE HYDROCHLORIDE\OXYCODONE TEREPHTHALATE
  10. XYREM [Suspect]
     Active Substance: SODIUM OXYBATE
     Dosage: DOSE ADJUSTMENT
     Route: 048
     Dates: start: 201309, end: 201706
  11. XYREM [Suspect]
     Active Substance: SODIUM OXYBATE
     Dosage: 3.5 G, QD (FIRST DOSE)
     Route: 048
     Dates: start: 201706
  12. XYREM [Suspect]
     Active Substance: SODIUM OXYBATE
     Dosage: 1.75 G, QD (SECOND DOSE)
     Route: 048
     Dates: start: 201706
  13. DOXYCYCLINE HYCLATE. [Concomitant]
     Active Substance: DOXYCYCLINE HYCLATE
  14. KLONOPIN [Concomitant]
     Active Substance: CLONAZEPAM
  15. INTUNIV [Concomitant]
     Active Substance: GUANFACINE HYDROCHLORIDE
  16. MINOCYCLINE [Concomitant]
     Active Substance: MINOCYCLINE\MINOCYCLINE HYDROCHLORIDE
  17. CYMBALTA [Concomitant]
     Active Substance: DULOXETINE HYDROCHLORIDE
  18. VITAMIN D                          /00107901/ [Concomitant]
     Active Substance: ERGOCALCIFEROL
  19. CHANTIX [Concomitant]
     Active Substance: VARENICLINE TARTRATE
  20. NUVIGIL [Concomitant]
     Active Substance: ARMODAFINIL
  21. SENOKOT-S [Concomitant]
     Active Substance: DOCUSATE SODIUM\SENNOSIDES
  22. ELMIRON [Concomitant]
     Active Substance: PENTOSAN POLYSULFATE SODIUM

REACTIONS (4)
  - Genital herpes [Unknown]
  - Facial paralysis [Recovered/Resolved]
  - Blood pressure increased [Not Recovered/Not Resolved]
  - Nerve block [Unknown]
